FAERS Safety Report 9566940 (Version 1)
Quarter: 2013Q3

REPORT INFORMATION
  Report Type: Spontaneous
  Country: US (occurrence: US)
  Receive Date: 20130930
  Receipt Date: 20130930
  Transmission Date: 20140515
  Serious: No
  Sender: FDA-Public Use
  Company Number: US-AMGEN-USASP2012060301

PATIENT
  Age: 57 Year
  Sex: Female

DRUGS (4)
  1. ENBREL [Suspect]
     Indication: RHEUMATOID ARTHRITIS
     Dosage: UNK UNK, QWK
     Dates: start: 20120910
  2. METHOTREXATE [Concomitant]
     Dosage: 15 MG, QWK
  3. LEFLUNOMIDE [Concomitant]
     Dosage: UNK
  4. PREDNISONE [Concomitant]
     Dosage: 10 MG, UNK

REACTIONS (3)
  - Pyrexia [Recovering/Resolving]
  - Pain [Recovering/Resolving]
  - Diarrhoea [Recovered/Resolved]
